FAERS Safety Report 10751123 (Version 1)
Quarter: 2015Q1

REPORT INFORMATION
  Report Type: Spontaneous
  Country: US (occurrence: None)
  Receive Date: 20150129
  Receipt Date: 20150129
  Transmission Date: 20150721
  Serious: Yes (Other)
  Sender: FDA-Public Use
  Company Number: None

PATIENT
  Age: 67 Year
  Sex: Female

DRUGS (1)
  1. ADCIRCA [Suspect]
     Active Substance: TADALAFIL
     Indication: PULMONARY HYPERTENSION
     Route: 048
     Dates: start: 20150119, end: 20150123

REACTIONS (7)
  - Chest pain [None]
  - Dyspnoea [None]
  - Depression [None]
  - Abasia [None]
  - Anxiety [None]
  - Frustration [None]
  - Malaise [None]

NARRATIVE: CASE EVENT DATE: 20150128
